FAERS Safety Report 12947025 (Version 1)
Quarter: 2016Q4

REPORT INFORMATION
  Report Type: Spontaneous
  Country: US (occurrence: US)
  Receive Date: 20161116
  Receipt Date: 20161116
  Transmission Date: 20170207
  Serious: Yes (Disabling)
  Sender: FDA-Public Use
  Company Number: None

PATIENT
  Age: 77 Year
  Sex: Male
  Weight: 97.52 kg

DRUGS (1)
  1. ZOLPIDEM TARTRATE. [Suspect]
     Active Substance: ZOLPIDEM TARTRATE
     Indication: SLEEP DISORDER
     Dosage: ZOLPIDEM TARTRATE - 1 PILL AS NEEDED AT BEDTIME - PO
     Route: 048
     Dates: start: 20160829, end: 20160830

REACTIONS (4)
  - Balance disorder [None]
  - Tremor [None]
  - Coordination abnormal [None]
  - Gait disturbance [None]

NARRATIVE: CASE EVENT DATE: 20160830
